FAERS Safety Report 12492893 (Version 1)
Quarter: 2016Q2

REPORT INFORMATION
  Report Type: Spontaneous
  Country: CH (occurrence: CH)
  Receive Date: 20160623
  Receipt Date: 20160623
  Transmission Date: 20160815
  Serious: Yes (Life-Threatening)
  Sender: FDA-Public Use
  Company Number: CH-COL_23194_2016

PATIENT
  Age: 35 Year
  Sex: Female

DRUGS (1)
  1. ELMEX GELEE [Suspect]
     Active Substance: DECTAFLUR\OLAFLUR\SODIUM FLUORIDE
     Indication: DENTAL FLUORIDE THERAPY
     Dosage: NI/ONCE/
     Route: 048
     Dates: start: 201605, end: 201605

REACTIONS (4)
  - Lip swelling [Recovering/Resolving]
  - Maternal exposure during pregnancy [Recovered/Resolved]
  - Gingival swelling [Recovering/Resolving]
  - Mucosal exfoliation [Recovering/Resolving]

NARRATIVE: CASE EVENT DATE: 201605
